FAERS Safety Report 19458432 (Version 1)
Quarter: 2021Q2

REPORT INFORMATION
  Report Type: Spontaneous
  Country: US (occurrence: US)
  Receive Date: 20210624
  Receipt Date: 20210624
  Transmission Date: 20210717
  Serious: No
  Sender: FDA-Public Use
  Company Number: US-PFIZER INC-2021354454

PATIENT
  Age: 52 Year
  Sex: Male
  Weight: 136.05 kg

DRUGS (6)
  1. BOSULIF [Suspect]
     Active Substance: BOSUTINIB MONOHYDRATE
     Indication: CHRONIC MYELOID LEUKAEMIA
     Dosage: 400 MG, 1X/DAY
     Route: 048
     Dates: start: 202101
  2. LASIX [Concomitant]
     Active Substance: FUROSEMIDE
     Dosage: 10 MG (10 MG/ML VIAL)
  3. FERROUS SULFATE. [Concomitant]
     Active Substance: FERROUS SULFATE
     Dosage: 100 % POWDER
  4. METOLAZONE. [Concomitant]
     Active Substance: METOLAZONE
     Dosage: 10 MG
  5. WARFARIN SODIUM. [Concomitant]
     Active Substance: WARFARIN SODIUM
     Dosage: 10 MG
  6. ALBUTEROL SULFATE. [Concomitant]
     Active Substance: ALBUTEROL SULFATE
     Dosage: UNK

REACTIONS (2)
  - Dyspnoea [Unknown]
  - Diarrhoea [Unknown]
